FAERS Safety Report 24755004 (Version 1)
Quarter: 2024Q4

REPORT INFORMATION
  Report Type: Report from Study
  Country: DE (occurrence: DE)
  Receive Date: 20241219
  Receipt Date: 20241219
  Transmission Date: 20250115
  Serious: Yes (Hospitalization)
  Sender: ABBVIE
  Company Number: DE-ABBVIE-6033891

PATIENT
  Age: 64 Year
  Sex: Male

DRUGS (1)
  1. FOSCARBIDOPA\FOSLEVODOPA [Suspect]
     Active Substance: FOSCARBIDOPA\FOSLEVODOPA
     Indication: Parkinson^s disease
     Dosage: SD: 0.40 ML; CRN: 0.34 ML/H; CR: 0.4 ML/H; CRH: 0.42 ML/H
     Route: 058
     Dates: start: 20241106, end: 20241202

REACTIONS (6)
  - Sepsis [Recovered/Resolved]
  - Pneumonia [Recovered/Resolved]
  - Hallucination [Recovering/Resolving]
  - Musculoskeletal stiffness [Recovering/Resolving]
  - General physical health deterioration [Unknown]
  - Fall [Recovered/Resolved]

NARRATIVE: CASE EVENT DATE: 20240101
